FAERS Safety Report 10600924 (Version 3)
Quarter: 2015Q1

REPORT INFORMATION
  Report Type: Report from Study
  Country: GB (occurrence: GB)
  Receive Date: 20141124
  Receipt Date: 20150317
  Transmission Date: 20150720
  Serious: Yes (Life-Threatening, Hospitalization, Other)
  Sender: FDA-Public Use
  Company Number: GB-ROCHE-1452314

PATIENT
  Age: 73 Year
  Sex: Female

DRUGS (1)
  1. RANIBIZUMAB [Suspect]
     Active Substance: RANIBIZUMAB
     Indication: AGE-RELATED MACULAR DEGENERATION
     Dosage: 0.5 UG/0.05ML
     Route: 050
     Dates: start: 20090919, end: 20131024

REACTIONS (4)
  - Infective exacerbation of chronic obstructive airways disease [Unknown]
  - Metastases to central nervous system [Unknown]
  - Non-small cell lung cancer [Unknown]
  - Small cell lung cancer metastatic [Not Recovered/Not Resolved]

NARRATIVE: CASE EVENT DATE: 2014
